FAERS Safety Report 10896668 (Version 1)
Quarter: 2015Q1

REPORT INFORMATION
  Report Type: Spontaneous
  Country: US (occurrence: None)
  Receive Date: 20150302
  Receipt Date: 20150302
  Transmission Date: 20150721
  Serious: No
  Sender: FDA-Public Use
  Company Number: None

PATIENT
  Age: 51 Year
  Sex: Female

DRUGS (14)
  1. NABUMETONE. [Concomitant]
     Active Substance: NABUMETONE
  2. INSULIN LISPRO [Concomitant]
     Active Substance: INSULIN LISPRO
  3. LISINOPRIL. [Concomitant]
     Active Substance: LISINOPRIL
  4. CYCLOSPORINE. [Concomitant]
     Active Substance: CYCLOSPORINE
  5. CROMOLYN [Concomitant]
     Active Substance: CROMOLYN
  6. AMPYRA [Concomitant]
     Active Substance: DALFAMPRIDINE
  7. CIPRO [Concomitant]
     Active Substance: CIPROFLOXACIN HYDROCHLORIDE
  8. GLIPIZ [Concomitant]
  9. AMPYRA [Suspect]
     Active Substance: DALFAMPRIDINE
     Indication: MULTIPLE SCLEROSIS
     Route: 048
     Dates: start: 201301, end: 201312
  10. NITROFURANTOIN. [Concomitant]
     Active Substance: NITROFURANTOIN
  11. METHOCARBAMOL. [Concomitant]
     Active Substance: METHOCARBAMOL
  12. OXYBUTYNIN [Concomitant]
     Active Substance: OXYBUTYNIN
  13. TYSABRI [Concomitant]
     Active Substance: NATALIZUMAB
  14. INSULIN GLARGINE [Concomitant]
     Active Substance: INSULIN GLARGINE

REACTIONS (2)
  - Urinary tract infection [None]
  - Drug ineffective [None]

NARRATIVE: CASE EVENT DATE: 20150227
